FAERS Safety Report 21374713 (Version 1)
Quarter: 2022Q3

REPORT INFORMATION
  Report Type: Spontaneous
  Country: ES (occurrence: ES)
  Receive Date: 20220926
  Receipt Date: 20220926
  Transmission Date: 20221027
  Serious: Yes (Hospitalization, Other)
  Sender: FDA-Public Use
  Company Number: None

PATIENT
  Age: 47 Year
  Sex: Female

DRUGS (4)
  1. DOXORUBICIN [Suspect]
     Active Substance: DOXORUBICIN
     Indication: Invasive ductal breast carcinoma
     Dosage: (202A) CYCLE FOUR EVERY 21 DAYS
     Route: 042
     Dates: start: 20210618, end: 20210826
  2. CYCLOPHOSPHAMIDE [Suspect]
     Active Substance: CYCLOPHOSPHAMIDE
     Indication: Invasive ductal breast carcinoma
     Dosage: (120A) CYCLE FOUR EVERY 21 DAYS
     Route: 042
     Dates: start: 20210618, end: 20210826
  3. OMEPRAZOLE [Concomitant]
     Active Substance: OMEPRAZOLE
     Indication: Breast cancer
     Dosage: (OMEPRAZOL TEVA-RIMAFAR) EFG (GENERIC PHARMACEUTICAL EQUIVALENT), 56 CAPSULES, 20.0 MG A-DECE
     Route: 048
     Dates: start: 20210624
  4. PARACETAMOL CINFA [Concomitant]
     Indication: Breast cancer
     Dosage: EFG, 40 SACHETS, 1.0 G BREAKFAST, LUNCH, DINNER, 1.0 G DECOCE
     Route: 048
     Dates: start: 20210830

REACTIONS (1)
  - Febrile neutropenia [Recovered/Resolved]

NARRATIVE: CASE EVENT DATE: 20210908
